FAERS Safety Report 4847493-3 (Version None)
Quarter: 2005Q4

REPORT INFORMATION
  Report Type: 
  Country: None (occurrence: None)
  Receive Date: 20051207
  Receipt Date: 20051124
  Transmission Date: 20060501
  Serious: Yes (Death, Disabling, Other)
  Sender: FDA-Public Use
  Company Number: IL-NOVOPROD-248832

PATIENT
  Age: 84 Year
  Sex: Female
  Weight: 54 kg

DRUGS (20)
  1. OTHER COMBINATIONS OF NUTRIENTS [Concomitant]
     Dosage: UNK, UNK
     Dates: start: 20050323
  2. DIPYRONE INJ [Concomitant]
     Dosage: 500 MG, QD
     Route: 048
     Dates: start: 20000101
  3. FLUTICASONE PROPIONATE [Concomitant]
     Dosage: 250 UG, PRN
     Route: 055
     Dates: start: 19970101
  4. NORDITROPIN SIMPLEXX 10 MG/ML [Suspect]
     Indication: RENAL FAILURE CHRONIC
     Dosage: 35 UG/KG, UNK
     Route: 058
     Dates: start: 20050302, end: 20050830
  5. AMIODARONE [Concomitant]
     Dosage: 200 MG, QD
     Route: 048
  6. MONOCARD [Concomitant]
     Dosage: 80 MG, QD
     Route: 048
  7. TRITACE [Concomitant]
     Dosage: 2.5 MG, QD
     Route: 048
  8. DIMITONE [Concomitant]
     Dosage: 6.25 MG, QD
     Route: 048
  9. PRAVASTATIN [Concomitant]
     Dosage: 10 MG, QD
     Route: 048
  10. NORVASC [Concomitant]
     Dosage: 5 MG, QD
     Route: 048
     Dates: start: 20000101
  11. CALCITRIOL [Concomitant]
     Dosage: 3 UG, UNK
     Route: 042
     Dates: start: 20040101
  12. TRIBEMIN [Concomitant]
     Dosage: 1 TAB, QD
     Route: 048
     Dates: start: 20050301
  13. CALTRATE [Concomitant]
     Dosage: 1800 MG, QD
     Route: 048
     Dates: start: 20030218
  14. ARANESP [Concomitant]
     Dosage: 80 UG, QD
     Route: 042
     Dates: start: 20040401
  15. CODEINE [Concomitant]
     Dosage: 20 MG, QD
     Route: 048
     Dates: start: 20000101
  16. SALBUTARD [Concomitant]
     Dosage: 4 PUFF, QD
     Route: 048
     Dates: start: 19980101
  17. FOLIC ACID [Concomitant]
     Dosage: 5 MG, QD
     Route: 048
     Dates: start: 20030218
  18. SACCHARATED IRON OXIDE [Concomitant]
     Dosage: 200 MG/MONTH
     Route: 042
     Dates: start: 20030201
  19. RECORMON                                /SCH/ [Concomitant]
     Dosage: 15000 IU, UNK
     Route: 042
     Dates: start: 20040401
  20. FUSID [Concomitant]
     Dosage: 80 MG, QD
     Route: 048
     Dates: start: 20000101

REACTIONS (6)
  - ARTERIOVENOUS GRAFT THROMBOSIS [None]
  - COLON CANCER METASTATIC [None]
  - METASTASES TO LIVER [None]
  - PULMONARY CONGESTION [None]
  - REFUSAL OF TREATMENT BY PATIENT [None]
  - UPPER RESPIRATORY TRACT INFECTION [None]
